FAERS Safety Report 18958595 (Version 1)
Quarter: 2021Q1

REPORT INFORMATION
  Report Type: Spontaneous
  Country: US (occurrence: US)
  Receive Date: 20210302
  Receipt Date: 20210302
  Transmission Date: 20210420
  Serious: Yes (Hospitalization, Other)
  Sender: FDA-Public Use
  Company Number: US-ASTRAZENECA-2021A077864

PATIENT
  Age: 463 Month
  Sex: Male
  Weight: 60 kg

DRUGS (60)
  1. TRAMADOL. [Concomitant]
     Active Substance: TRAMADOL
     Indication: PAIN
     Dates: start: 20140903, end: 20181223
  2. FAMOTIDINE. [Concomitant]
     Active Substance: FAMOTIDINE
     Dates: start: 20141122
  3. BUPROPION. [Concomitant]
     Active Substance: BUPROPION
  4. PROMETHAZINE [Concomitant]
     Active Substance: PROMETHAZINE HYDROCHLORIDE
  5. AFLURIA NOS [Concomitant]
     Active Substance: INFLUENZA VIRUS VACCINE TRIVALENT TYPE A+B AFLURIA
  6. FLUZONE [Concomitant]
     Active Substance: INFLUENZA A VIRUS A/CALIFORNIA/7/2009 X-179A (H1N1) ANTIGEN (FORMALDEHYDE INACTIVATED)\INFLUENZA A VIRUS A/VICTORIA/210/2009 X-187 (H3N2) ANTIGEN (FORMALDEHYDE INACTIVATED)\INFLUENZA B VIRUS B/BRISBANE/60/2008 ANTIGEN (FORMALDEHYDE INACTIVATED)
  7. OMEPRAZOLE. [Suspect]
     Active Substance: OMEPRAZOLE
     Indication: GASTROOESOPHAGEAL REFLUX DISEASE
     Route: 065
     Dates: start: 20141226, end: 20150125
  8. OMEPRAZOLE. [Suspect]
     Active Substance: OMEPRAZOLE
     Indication: GASTROOESOPHAGEAL REFLUX DISEASE
     Route: 065
     Dates: start: 20141226, end: 20150125
  9. LANSOPRAZOLE. [Suspect]
     Active Substance: LANSOPRAZOLE
     Indication: GASTROOESOPHAGEAL REFLUX DISEASE
     Route: 065
     Dates: start: 20150510, end: 20150609
  10. ASPIRIN. [Concomitant]
     Active Substance: ASPIRIN
     Dates: start: 20141122
  11. VITAMIN B [Concomitant]
     Active Substance: VITAMIN B
     Dates: start: 20141122
  12. TAMSULOSIN [Concomitant]
     Active Substance: TAMSULOSIN
  13. METOCLOPRAMIDE. [Concomitant]
     Active Substance: METOCLOPRAMIDE
  14. NALOXONE [Concomitant]
     Active Substance: NALOXONE
  15. LANSOPRAZOLE. [Suspect]
     Active Substance: LANSOPRAZOLE
     Indication: GASTROOESOPHAGEAL REFLUX DISEASE
     Route: 065
     Dates: start: 20150510, end: 20150609
  16. PROTONIX [Suspect]
     Active Substance: PANTOPRAZOLE SODIUM
     Indication: GASTROOESOPHAGEAL REFLUX DISEASE
     Route: 065
     Dates: start: 20000201, end: 20141231
  17. HYDROCODON?ACETAMINOPHEN [Concomitant]
     Active Substance: ACETAMINOPHEN\HYDROCODONE
  18. CREON [Concomitant]
     Active Substance: PANCRELIPASE AMYLASE\PANCRELIPASE LIPASE\PANCRELIPASE PROTEASE
  19. LEVEMIR [Concomitant]
     Active Substance: INSULIN DETEMIR
  20. CITALOPRAM [Concomitant]
     Active Substance: CITALOPRAM HYDROBROMIDE
  21. PREDNISONE. [Concomitant]
     Active Substance: PREDNISONE
     Dates: start: 20141122
  22. ZENPEP [Concomitant]
     Active Substance: PANCRELIPASE AMYLASE\PANCRELIPASE LIPASE\PANCRELIPASE PROTEASE
  23. MULTIVITAMINS [Concomitant]
     Active Substance: VITAMINS
  24. SIMVASTATIN. [Concomitant]
     Active Substance: SIMVASTATIN
  25. PROTONIX [Suspect]
     Active Substance: PANTOPRAZOLE SODIUM
     Indication: GASTROOESOPHAGEAL REFLUX DISEASE
     Route: 065
     Dates: start: 20000201, end: 20141231
  26. PROTONIX [Suspect]
     Active Substance: PANTOPRAZOLE SODIUM
     Indication: GASTROOESOPHAGEAL REFLUX DISEASE
     Dosage: GENERIC
     Route: 065
     Dates: start: 20140717, end: 20190107
  27. ONDANSETRON [Concomitant]
     Active Substance: ONDANSETRON
  28. METOPROLOL TARTRATE. [Concomitant]
     Active Substance: METOPROLOL TARTRATE
     Dates: start: 20141122, end: 20141222
  29. SUCRALFATE. [Concomitant]
     Active Substance: SUCRALFATE
  30. DOCUSATE SODIUM. [Concomitant]
     Active Substance: DOCUSATE SODIUM
  31. LISINOPRIL. [Concomitant]
     Active Substance: LISINOPRIL
     Indication: HYPERTENSION
     Dates: start: 20150916, end: 20170613
  32. BUPROPION HCL [Concomitant]
     Active Substance: BUPROPION HYDROCHLORIDE
  33. CYCLOBENZAPRINE. [Concomitant]
     Active Substance: CYCLOBENZAPRINE
  34. NOVOLOG [Concomitant]
     Active Substance: INSULIN ASPART
     Dates: start: 20141122
  35. PROAIR HFA [Concomitant]
     Active Substance: ALBUTEROL SULFATE
  36. INVOKANA [Concomitant]
     Active Substance: CANAGLIFLOZIN
  37. GLYBURIDE. [Concomitant]
     Active Substance: GLYBURIDE
  38. FERROUS SULFATE. [Concomitant]
     Active Substance: FERROUS SULFATE
     Dates: start: 20141122
  39. TAMSULOSIN HCL [Concomitant]
     Active Substance: TAMSULOSIN HYDROCHLORIDE
  40. METFORMIN [Concomitant]
     Active Substance: METFORMIN HYDROCHLORIDE
     Dates: start: 20141122
  41. PANTOPRAZOLE SOD [Concomitant]
     Active Substance: PANTOPRAZOLE SODIUM
     Dates: start: 20141122, end: 20141222
  42. LISINOPRIL. [Concomitant]
     Active Substance: LISINOPRIL
     Dates: start: 20141122
  43. TRAMADOL HCL [Concomitant]
     Active Substance: TRAMADOL HYDROCHLORIDE
  44. LEVAQUIN [Concomitant]
     Active Substance: LEVOFLOXACIN
  45. METFORMIN HCL [Concomitant]
     Active Substance: METFORMIN HYDROCHLORIDE
  46. TRAZODONE [Concomitant]
     Active Substance: TRAZODONE HYDROCHLORIDE
  47. ONDANSETRON HCL [Concomitant]
     Active Substance: ONDANSETRON HYDROCHLORIDE
  48. AMOXICILLIN. [Concomitant]
     Active Substance: AMOXICILLIN
  49. AMLODIPINE BESYLATE. [Concomitant]
     Active Substance: AMLODIPINE BESYLATE
  50. OXYCODON ACETAMINOPHEN [Concomitant]
  51. FAMOTIDINE. [Concomitant]
     Active Substance: FAMOTIDINE
  52. TESSALON [Concomitant]
     Active Substance: BENZONATATE
  53. MEPERIDINE [Concomitant]
     Active Substance: MEPERIDINE
  54. PROTONIX [Suspect]
     Active Substance: PANTOPRAZOLE SODIUM
     Indication: GASTROOESOPHAGEAL REFLUX DISEASE
     Dosage: GENERIC
     Route: 065
     Dates: start: 20140717, end: 20190107
  55. SULFAMETHOXAZOLE [Concomitant]
     Active Substance: SULFAMETHOXAZOLE
     Indication: INFECTION
     Dates: start: 20161106, end: 20161125
  56. AMOXICILLIN. [Concomitant]
     Active Substance: AMOXICILLIN
     Indication: INFECTION
     Dates: start: 20121012, end: 20121121
  57. NYSTATIN. [Concomitant]
     Active Substance: NYSTATIN
  58. TAMSULOSIN [Concomitant]
     Active Substance: TAMSULOSIN
     Dates: start: 20141122
  59. CINNAMON. [Concomitant]
     Active Substance: CINNAMON
  60. CEFDINIR. [Concomitant]
     Active Substance: CEFDINIR

REACTIONS (3)
  - Acute kidney injury [Unknown]
  - Chronic kidney disease [Not Recovered/Not Resolved]
  - Renal failure [Unknown]

NARRATIVE: CASE EVENT DATE: 20151030
